FAERS Safety Report 7555616-0 (Version None)
Quarter: 2011Q2

REPORT INFORMATION
  Report Type: 
  Country: None (occurrence: None)
  Receive Date: 20110617
  Receipt Date: 20010320
  Transmission Date: 20111010
  Serious: Yes (Hospitalization)
  Sender: FDA-Public Use
  Company Number: PHEH2001US02658

PATIENT
  Sex: Female

DRUGS (3)
  1. HUMA ASA [Concomitant]
     Dosage: 8 MG, QD
  2. EXELON [Suspect]
     Indication: DEMENTIA ALZHEIMER'S TYPE
     Dosage: 6 MG, QD
     Route: 048
     Dates: start: 20001219
  3. NORVASC [Concomitant]
     Dosage: 10 MG, QD

REACTIONS (2)
  - PULMONARY OEDEMA [None]
  - DYSPNOEA [None]
